FAERS Safety Report 5275887-3 (Version None)
Quarter: 2007Q1

REPORT INFORMATION
  Report Type: 
  Country: None (occurrence: None)
  Receive Date: 20070326
  Receipt Date: 20070322
  Transmission Date: 20070707
  Serious: Yes (Other)
  Sender: FDA-Public Use
  Company Number: DE-GILEAD-2006-0010343

PATIENT
  Sex: Male
  Weight: 76 kg

DRUGS (4)
  1. TRUVADA [Suspect]
     Dates: start: 20060801
  2. SUSTIVA [Concomitant]
     Dates: start: 20060801
  3. VIRACEPT [Concomitant]
     Dates: end: 20060801
  4. COMBIVIR [Concomitant]
     Dates: end: 20060801

REACTIONS (2)
  - DEEP VEIN THROMBOSIS [None]
  - PULMONARY EMBOLISM [None]
